FAERS Safety Report 21322141 (Version 4)
Quarter: 2023Q4

REPORT INFORMATION
  Report Type: Report from Study
  Country: FR (occurrence: FR)
  Receive Date: 20220912
  Receipt Date: 20231006
  Transmission Date: 20240110
  Serious: Yes (Other)
  Sender: FDA-Public Use
  Company Number: FR-NOVARTISPH-NVSC2021FR243009

PATIENT
  Age: 57 Year
  Sex: Male
  Weight: 76 kg

DRUGS (11)
  1. PLUVICTO [Suspect]
     Active Substance: LUTETIUM LU-177 VIPIVOTIDE TETRAXETAN
     Indication: Hormone-refractory prostate cancer
     Dosage: 7.36 GBQ, ONCE/SINGLE
     Route: 042
     Dates: start: 20210728, end: 20210909
  2. LOCAMETZ [Suspect]
     Active Substance: PSMA-HBED-CC
     Indication: Hormone-refractory prostate cancer
     Dosage: 148.7 MBQ, ONCE/SINGLE
     Route: 042
     Dates: start: 20210706
  3. CANNABIDIOL [Concomitant]
     Active Substance: CANNABIDIOL
     Indication: Nutritional supplementation
     Dosage: UNK
     Route: 065
     Dates: start: 2020
  4. POLYSACCHARIDE-K [Concomitant]
     Active Substance: POLYSACCHARIDE-K
     Indication: Nutritional supplementation
     Dosage: UNK
     Route: 065
     Dates: start: 2020
  5. SILICIUM [Concomitant]
     Indication: Nutritional supplementation
     Dosage: UNK
     Route: 065
     Dates: start: 2020
  6. DECAPEPTYL [Concomitant]
     Indication: Prostate cancer
     Dosage: UNK
     Route: 065
     Dates: start: 202006
  7. CALCIUM CARBONATE\CHOLECALCIFEROL [Concomitant]
     Active Substance: CALCIUM CARBONATE\CHOLECALCIFEROL
     Indication: Vitamin supplementation
     Dosage: UNK
     Route: 065
     Dates: start: 20210223
  8. DENOSUMAB [Concomitant]
     Active Substance: DENOSUMAB
     Indication: Prophylaxis
     Dosage: UNK
     Route: 065
     Dates: start: 20210305
  9. ELIQUIS [Concomitant]
     Active Substance: APIXABAN
     Indication: Pelvic venous thrombosis
     Dosage: UNK
     Route: 065
     Dates: start: 20210305
  10. ACETAMINOPHEN [Concomitant]
     Active Substance: ACETAMINOPHEN
     Indication: Arthralgia
     Dosage: UNK
     Route: 065
     Dates: start: 20210824, end: 20210927
  11. ONDANSETRON [Concomitant]
     Active Substance: ONDANSETRON
     Indication: Premedication
     Dosage: UNK
     Route: 065
     Dates: start: 20210909, end: 20210909

REACTIONS (2)
  - Alanine aminotransferase increased [Recovering/Resolving]
  - Aspartate aminotransferase increased [Recovering/Resolving]

NARRATIVE: CASE EVENT DATE: 20210909
